FAERS Safety Report 14873678 (Version 1)
Quarter: 2018Q2

REPORT INFORMATION
  Report Type: Report from Study
  Country: None (occurrence: US)
  Receive Date: 20180510
  Receipt Date: 20180510
  Transmission Date: 20180711
  Serious: Yes (Other)
  Sender: FDA-Public Use
  Company Number: US-ABBVIE-18K-163-2286857-00

PATIENT
  Sex: Male

DRUGS (1)
  1. HUMIRA [Suspect]
     Active Substance: ADALIMUMAB
     Indication: PSORIASIS
     Route: 058

REACTIONS (6)
  - Neuralgia [Unknown]
  - Injection site pain [Not Recovered/Not Resolved]
  - Appendicectomy [Recovering/Resolving]
  - Abdominal neoplasm [Recovering/Resolving]
  - Rotator cuff syndrome [Not Recovered/Not Resolved]
  - Injection site bruising [Not Recovered/Not Resolved]
